FAERS Safety Report 6739922-5 (Version None)
Quarter: 2010Q2

REPORT INFORMATION
  Report Type: 
  Country: None (occurrence: None)
  Receive Date: 20100525
  Receipt Date: 20100518
  Transmission Date: 20101027
  Serious: Yes (Other)
  Sender: FDA-Public Use
  Company Number: US-PFIZER INC-2010063121

PATIENT
  Age: 34 Year
  Sex: Female

DRUGS (2)
  1. GEODON [Suspect]
     Indication: BIPOLAR DISORDER
     Dosage: 60 MG, 1X/DAY
     Dates: start: 20051201
  2. ZOLOFT [Concomitant]
     Dosage: 50 MG

REACTIONS (2)
  - FACTOR V DEFICIENCY [None]
  - THROMBOSIS [None]
